FAERS Safety Report 6388223-6 (Version None)
Quarter: 2009Q4

REPORT INFORMATION
  Report Type: 
  Country: None (occurrence: None)
  Receive Date: 20091001
  Receipt Date: 20091001
  Transmission Date: 20100525
  Serious: Yes (Death)
  Sender: FDA-Public Use
  Company Number: None

PATIENT
  Sex: Female

DRUGS (10)
  1. REVLIMID [Suspect]
     Indication: MULTIPLE MYELOMA
     Dosage: 15NG EVERY OTHER DAY ORALLY
     Route: 048
  2. PROCRIT [Concomitant]
  3. ASPIRIN [Concomitant]
  4. LEVOTHROID [Concomitant]
  5. SIMVASTATIN [Concomitant]
  6. NORTIPTYLINE [Concomitant]
  7. PAXIL [Concomitant]
  8. FAMOTADINE [Concomitant]
  9. ALLOPURINOL [Concomitant]
  10. RENAGEL [Concomitant]

REACTIONS (3)
  - ASTHENIA [None]
  - DEHYDRATION [None]
  - ESCHERICHIA URINARY TRACT INFECTION [None]
